FAERS Safety Report 26122646 (Version 1)
Quarter: 2025Q4

REPORT INFORMATION
  Report Type: Spontaneous
  Country: EU (occurrence: EU)
  Receive Date: 20251204
  Receipt Date: 20251204
  Transmission Date: 20260117
  Serious: Yes (Hospitalization, Other)
  Sender: MYLAN
  Company Number: None

PATIENT
  Age: 71 Year
  Sex: Female
  Weight: 62 kg

DRUGS (32)
  1. ATORVASTATIN [Interacting]
     Active Substance: ATORVASTATIN
     Indication: Hypercholesterolaemia
     Dosage: 10 MILLIGRAM, QD
  2. ATORVASTATIN [Interacting]
     Active Substance: ATORVASTATIN
     Dosage: 10 MILLIGRAM, QD
     Route: 065
  3. ATORVASTATIN [Interacting]
     Active Substance: ATORVASTATIN
     Dosage: 10 MILLIGRAM, QD
     Route: 065
  4. ATORVASTATIN [Interacting]
     Active Substance: ATORVASTATIN
     Dosage: 10 MILLIGRAM, QD
  5. ATORVASTATIN [Interacting]
     Active Substance: ATORVASTATIN
     Indication: Hypercholesterolaemia
     Dosage: 40 MILLIGRAM, QD
     Dates: start: 20250110, end: 20250215
  6. ATORVASTATIN [Interacting]
     Active Substance: ATORVASTATIN
     Dosage: 40 MILLIGRAM, QD
     Route: 048
     Dates: start: 20250110, end: 20250215
  7. ATORVASTATIN [Interacting]
     Active Substance: ATORVASTATIN
     Dosage: 40 MILLIGRAM, QD
     Route: 048
     Dates: start: 20250110, end: 20250215
  8. ATORVASTATIN [Interacting]
     Active Substance: ATORVASTATIN
     Dosage: 40 MILLIGRAM, QD
     Dates: start: 20250110, end: 20250215
  9. CYCLOSPORINE [Interacting]
     Active Substance: CYCLOSPORINE
     Indication: Prophylaxis against transplant rejection
     Dosage: UNK (INITIATION)
  10. CYCLOSPORINE [Interacting]
     Active Substance: CYCLOSPORINE
     Dosage: UNK (INITIATION)
     Route: 065
  11. CYCLOSPORINE [Interacting]
     Active Substance: CYCLOSPORINE
     Dosage: UNK (INITIATION)
     Route: 065
  12. CYCLOSPORINE [Interacting]
     Active Substance: CYCLOSPORINE
     Dosage: UNK (INITIATION)
  13. CYCLOSPORINE [Interacting]
     Active Substance: CYCLOSPORINE
     Dosage: 50 MG MORNING + 25 MG EVENING (RESUMPTION AFTER SEVERAL DAYS OF DISCONTINUATION BY THE PATIENT)
     Route: 065
     Dates: start: 20250107
  14. CYCLOSPORINE [Interacting]
     Active Substance: CYCLOSPORINE
     Dosage: 50 MG MORNING + 25 MG EVENING (RESUMPTION AFTER SEVERAL DAYS OF DISCONTINUATION BY THE PATIENT)
     Dates: start: 20250107
  15. CYCLOSPORINE [Interacting]
     Active Substance: CYCLOSPORINE
     Dosage: 50 MG MORNING + 25 MG EVENING (RESUMPTION AFTER SEVERAL DAYS OF DISCONTINUATION BY THE PATIENT)
     Dates: start: 20250107
  16. CYCLOSPORINE [Interacting]
     Active Substance: CYCLOSPORINE
     Dosage: 50 MG MORNING + 25 MG EVENING (RESUMPTION AFTER SEVERAL DAYS OF DISCONTINUATION BY THE PATIENT)
     Route: 065
     Dates: start: 20250107
  17. CYCLOSPORINE [Interacting]
     Active Substance: CYCLOSPORINE
     Dosage: 50 MILLIGRAM, BID (INCREASED TO 50 MG TWICE DAILY)
     Route: 065
     Dates: start: 20250110
  18. CYCLOSPORINE [Interacting]
     Active Substance: CYCLOSPORINE
     Dosage: 50 MILLIGRAM, BID (INCREASED TO 50 MG TWICE DAILY)
     Route: 065
     Dates: start: 20250110
  19. CYCLOSPORINE [Interacting]
     Active Substance: CYCLOSPORINE
     Dosage: 50 MILLIGRAM, BID (INCREASED TO 50 MG TWICE DAILY)
     Dates: start: 20250110
  20. CYCLOSPORINE [Interacting]
     Active Substance: CYCLOSPORINE
     Dosage: 50 MILLIGRAM, BID (INCREASED TO 50 MG TWICE DAILY)
     Dates: start: 20250110
  21. CYCLOSPORINE [Interacting]
     Active Substance: CYCLOSPORINE
     Dosage: 75 MILLIGRAM, BID (TWICE DAILY WHICH WAS COMPLICATED BY AN OVERDOSE)
     Route: 048
     Dates: start: 20250113, end: 20250120
  22. CYCLOSPORINE [Interacting]
     Active Substance: CYCLOSPORINE
     Dosage: 75 MILLIGRAM, BID (TWICE DAILY WHICH WAS COMPLICATED BY AN OVERDOSE)
     Route: 048
     Dates: start: 20250113, end: 20250120
  23. CYCLOSPORINE [Interacting]
     Active Substance: CYCLOSPORINE
     Dosage: 75 MILLIGRAM, BID (TWICE DAILY WHICH WAS COMPLICATED BY AN OVERDOSE)
     Dates: start: 20250113, end: 20250120
  24. CYCLOSPORINE [Interacting]
     Active Substance: CYCLOSPORINE
     Dosage: 75 MILLIGRAM, BID (TWICE DAILY WHICH WAS COMPLICATED BY AN OVERDOSE)
     Dates: start: 20250113, end: 20250120
  25. CYCLOSPORINE [Interacting]
     Active Substance: CYCLOSPORINE
     Dosage: 50 MILLIGRAM (REDUCTION)
  26. CYCLOSPORINE [Interacting]
     Active Substance: CYCLOSPORINE
     Dosage: 50 MILLIGRAM (REDUCTION)
  27. CYCLOSPORINE [Interacting]
     Active Substance: CYCLOSPORINE
     Dosage: 50 MILLIGRAM (REDUCTION)
     Route: 065
  28. CYCLOSPORINE [Interacting]
     Active Substance: CYCLOSPORINE
     Dosage: 50 MILLIGRAM (REDUCTION)
     Route: 065
  29. MYCOPHENOLIC ACID [Concomitant]
     Active Substance: MYCOPHENOLIC ACID
     Indication: Renal transplant
     Dosage: UNK
  30. MYCOPHENOLIC ACID [Concomitant]
     Active Substance: MYCOPHENOLIC ACID
     Dosage: UNK
     Route: 065
  31. MYCOPHENOLIC ACID [Concomitant]
     Active Substance: MYCOPHENOLIC ACID
     Dosage: UNK
     Route: 065
  32. MYCOPHENOLIC ACID [Concomitant]
     Active Substance: MYCOPHENOLIC ACID
     Dosage: UNK

REACTIONS (6)
  - Ischaemic stroke [Unknown]
  - Rhabdomyolysis [Recovering/Resolving]
  - Drug interaction [Recovered/Resolved]
  - Hepatic cytolysis [Unknown]
  - Product dose omission in error [Unknown]
  - Underdose [Unknown]

NARRATIVE: CASE EVENT DATE: 20250215
